FAERS Safety Report 4271690-1 (Version None)
Quarter: 2004Q1

REPORT INFORMATION
  Report Type: 
  Country: None (occurrence: None)
  Receive Date: 20040113
  Receipt Date: 20031230
  Transmission Date: 20041129
  Serious: Yes (Hospitalization)
  Sender: FDA-Public Use
  Company Number: 04P-056-0246451-00

PATIENT
  Age: 76 Year
  Sex: Male

DRUGS (5)
  1. DEPAKENE [Suspect]
     Indication: CONVULSION
     Dosage: 100 MG, 1 IN 1 D, ORAL; 750 MG, 1 IN 1 D, ORAL
     Route: 048
     Dates: start: 19820101, end: 20031208
  2. DEPAKENE [Suspect]
     Indication: CONVULSION
     Dosage: 100 MG, 1 IN 1 D, ORAL; 750 MG, 1 IN 1 D, ORAL
     Route: 048
     Dates: start: 20031208
  3. ASPIRIN [Suspect]
     Indication: VIRAL PERICARDITIS
     Dosage: 3000 MG, 1 IN 1 D, ORAL; 2000 MG, 1 IN 1 D, ORAL; 1000 MG, 1 IN 1 D, ORAL
     Route: 048
     Dates: start: 20031112, end: 20030101
  4. ASPIRIN [Suspect]
     Indication: VIRAL PERICARDITIS
     Dosage: 3000 MG, 1 IN 1 D, ORAL; 2000 MG, 1 IN 1 D, ORAL; 1000 MG, 1 IN 1 D, ORAL
     Route: 048
     Dates: start: 20030101, end: 20031215
  5. ASPIRIN [Suspect]
     Indication: VIRAL PERICARDITIS
     Dosage: 3000 MG, 1 IN 1 D, ORAL; 2000 MG, 1 IN 1 D, ORAL; 1000 MG, 1 IN 1 D, ORAL
     Route: 048
     Dates: start: 20031215

REACTIONS (19)
  - C-REACTIVE PROTEIN INCREASED [None]
  - CARDIAC FAILURE [None]
  - DEPRESSED LEVEL OF CONSCIOUSNESS [None]
  - DIFFICULTY IN WALKING [None]
  - DISORIENTATION [None]
  - DRUG INTERACTION [None]
  - EXTRAPYRAMIDAL DISORDER [None]
  - FALL [None]
  - HYPERAMMONAEMIA [None]
  - HYPERKINESIA [None]
  - HYPOPROTEINAEMIA [None]
  - INFLAMMATION [None]
  - LUNG DISORDER [None]
  - MARKEDLY REDUCED DIETARY INTAKE [None]
  - RED BLOOD CELL SEDIMENTATION RATE INCREASED [None]
  - SOMNOLENCE [None]
  - TREMOR [None]
  - VIRAL INFECTION [None]
  - VIRAL PERICARDITIS [None]
